FAERS Safety Report 14194356 (Version 1)
Quarter: 2017Q4

REPORT INFORMATION
  Report Type: Spontaneous
  Country: US (occurrence: US)
  Receive Date: 20171115
  Receipt Date: 20171115
  Transmission Date: 20180321
  Serious: Yes (Other)
  Sender: FDA-Public Use
  Company Number: None

PATIENT
  Age: 68 Year
  Sex: Male

DRUGS (1)
  1. TAMSULOSIN [Suspect]
     Active Substance: TAMSULOSIN
     Indication: PROSTATIC DISORDER
     Route: 048
     Dates: start: 20171018, end: 20171114

REACTIONS (5)
  - Drug ineffective [None]
  - Penis disorder [None]
  - Feeling abnormal [None]
  - Urinary tract disorder [None]
  - Product substitution issue [None]

NARRATIVE: CASE EVENT DATE: 20171114
